FAERS Safety Report 5085204-X (Version None)
Quarter: 2006Q3

REPORT INFORMATION
  Report Type: 
  Country: None (occurrence: None)
  Receive Date: 20060731
  Receipt Date: 20051108
  Transmission Date: 20061208
  Serious: Yes (Hospitalization)
  Sender: FDA-Public Use
  Company Number: 200512080BWH

PATIENT
  Sex: Female

DRUGS (3)
  1. AVELOX [Suspect]
     Dosage: 400 MG, ONCE, ORAL
     Route: 048
  2. HYDROCHLOROTHIAZIDE [Concomitant]
  3. MULTI-VITAMIN [Concomitant]

REACTIONS (1)
  - ANAPHYLACTIC REACTION [None]
